FAERS Safety Report 15357948 (Version 1)
Quarter: 2018Q4

REPORT INFORMATION
  Report Type: Spontaneous
  Country: FR (occurrence: FR)
  Receive Date: 20180906
  Receipt Date: 20180906
  Transmission Date: 20190204
  Serious: Yes (Hospitalization)
  Sender: FDA-Public Use
  Company Number: PHHY2018FR089862

PATIENT
  Age: 84 Year
  Sex: Male
  Weight: 60 kg

DRUGS (3)
  1. CLAMOXYL (AMOXICILLIN) [Suspect]
     Active Substance: AMOXICILLIN
     Indication: ENDOCARDITIS
     Dosage: 9 G, QD (IN 3 SHOTS)
     Route: 041
  2. AMOXICILLIN. [Suspect]
     Active Substance: AMOXICILLIN
     Indication: ENDOCARDITIS
     Dosage: 12 G, UNK (IN 4 SHOTS)
     Route: 048
  3. ROCEPHINE [Suspect]
     Active Substance: CEFTRIAXONE SODIUM
     Indication: ENDOCARDITIS
     Dosage: 4 G, QD
     Route: 041
     Dates: start: 20180723

REACTIONS (1)
  - Acute kidney injury [Recovering/Resolving]

NARRATIVE: CASE EVENT DATE: 20180725
